FAERS Safety Report 17358838 (Version 2)
Quarter: 2021Q4

REPORT INFORMATION
  Report Type: Spontaneous
  Country: US (occurrence: US)
  Receive Date: 20200202
  Receipt Date: 20211011
  Transmission Date: 20220303
  Serious: Yes (Death, Other)
  Sender: FDA-Public Use
  Company Number: US-GLENMARK PHARMACEUTICALS-2020GMK045813

PATIENT
  Age: 49 Year
  Sex: Male

DRUGS (1)
  1. VERAPAMIL [Suspect]
     Active Substance: VERAPAMIL HYDROCHLORIDE
     Indication: Suicide attempt
     Dosage: UNK (50 TABLETS)
     Route: 048

REACTIONS (5)
  - Cardiac arrest [Fatal]
  - Toxicity to various agents [Fatal]
  - Completed suicide [Fatal]
  - Shock [Fatal]
  - Intentional overdose [Fatal]
